FAERS Safety Report 20967948 (Version 8)
Quarter: 2022Q4

REPORT INFORMATION
  Report Type: Spontaneous
  Country: FR (occurrence: FR)
  Receive Date: 20220616
  Receipt Date: 20221229
  Transmission Date: 20230113
  Serious: Yes (Other)
  Sender: FDA-Public Use
  Company Number: FR-EIGER BIOPHARMACEUTICALS-EIG-2022-000005

PATIENT
  Age: 3 Year
  Sex: Male
  Weight: 6.74 kg

DRUGS (11)
  1. LONAFARNIB [Suspect]
     Active Substance: LONAFARNIB
     Indication: Progeria
     Dosage: 115 MG/M2, BID
     Route: 048
     Dates: start: 20220213
  2. LONAFARNIB [Suspect]
     Active Substance: LONAFARNIB
     Dosage: 115 MG, BID
     Route: 048
     Dates: start: 20220425, end: 20220524
  3. LONAFARNIB [Suspect]
     Active Substance: LONAFARNIB
     Dosage: 40 MG/M2, BID
     Route: 048
     Dates: start: 20220619, end: 20220722
  4. LONAFARNIB [Suspect]
     Active Substance: LONAFARNIB
     Dosage: 40 MG/M2, BID
     Route: 048
     Dates: start: 20220807
  5. LONAFARNIB [Suspect]
     Active Substance: LONAFARNIB
     Dosage: 115 MG/M2, BID
     Route: 048
     Dates: start: 20220810
  6. LONAFARNIB [Suspect]
     Active Substance: LONAFARNIB
     Dosage: 40 MG/M2, BID
     Route: 048
     Dates: start: 20220812
  7. LONAFARNIB [Suspect]
     Active Substance: LONAFARNIB
     Dosage: 40 MG/M2, BID
     Route: 048
     Dates: start: 20220826
  8. ASPIRIN [Concomitant]
     Active Substance: ASPIRIN
     Indication: Progeria
     Dosage: 50 MG, QD, ORALLY
     Dates: start: 20201201
  9. ASPIRIN [Concomitant]
     Active Substance: ASPIRIN
     Indication: Prophylaxis
  10. PRAVASTATIN [Concomitant]
     Active Substance: PRAVASTATIN
     Indication: Progeria
     Dosage: 5 MG, QD, ORALLY
     Dates: start: 20201201
  11. PRAVASTATIN [Concomitant]
     Active Substance: PRAVASTATIN
     Indication: Prophylaxis

REACTIONS (13)
  - Intracranial pressure increased [Not Recovered/Not Resolved]
  - Ear infection [Recovered/Resolved]
  - Asthenia [Recovered/Resolved]
  - Weight decreased [Recovered/Resolved]
  - Decreased appetite [Recovered/Resolved]
  - Fatigue [Recovered/Resolved]
  - Fatigue [Recovered/Resolved]
  - Headache [Recovered/Resolved]
  - Headache [Recovered/Resolved]
  - Diarrhoea [Recovered/Resolved]
  - Diarrhoea [Recovered/Resolved]
  - Diarrhoea [Recovered/Resolved]
  - Diarrhoea [Recovered/Resolved]

NARRATIVE: CASE EVENT DATE: 20220215
